FAERS Safety Report 7659260-6 (Version None)
Quarter: 2011Q3

REPORT INFORMATION
  Report Type: 
  Country: None (occurrence: None)
  Receive Date: 20110805
  Receipt Date: 20110803
  Transmission Date: 20111222
  Serious: Yes (Hospitalization)
  Sender: FDA-Public Use
  Company Number: BR-ROCHE-781702

PATIENT
  Sex: Female
  Weight: 59 kg

DRUGS (6)
  1. TOCILIZUMAB [Suspect]
     Route: 042
     Dates: start: 20100701
  2. TOCILIZUMAB [Suspect]
     Route: 042
     Dates: start: 20100801
  3. TOCILIZUMAB [Suspect]
     Route: 042
     Dates: start: 20100901
  4. TOCILIZUMAB [Suspect]
     Route: 042
     Dates: start: 20101101, end: 20101101
  5. TOCILIZUMAB [Suspect]
     Indication: RHEUMATOID ARTHRITIS
     Dosage: FORM: INFUSION
     Route: 042
     Dates: start: 20100601
  6. TOCILIZUMAB [Suspect]
     Route: 042
     Dates: start: 20101001

REACTIONS (2)
  - THROMBOSIS [None]
  - PYODERMA GANGRENOSUM [None]
